FAERS Safety Report 9953456 (Version 1)
Quarter: 2014Q1

REPORT INFORMATION
  Report Type: Spontaneous
  Country: US (occurrence: US)
  Receive Date: 20140304
  Receipt Date: 20140304
  Transmission Date: 20141002
  Serious: Yes (Other)
  Sender: FDA-Public Use
  Company Number: US-ABBVIE-13P-163-1073485-00

PATIENT
  Age: 59 Year
  Sex: Female
  Weight: 87.17 kg

DRUGS (7)
  1. HUMIRA [Suspect]
     Indication: PSORIATIC ARTHROPATHY
     Dates: start: 2010
  2. LYRICA [Suspect]
     Indication: FIBROMYALGIA
     Route: 048
  3. LYRICA [Suspect]
  4. LYRICA [Suspect]
     Dates: end: 20121215
  5. ENBREL [Suspect]
     Indication: PSORIATIC ARTHROPATHY
     Dates: start: 2012
  6. OMEPRAZOLE [Concomitant]
     Indication: GASTROOESOPHAGEAL REFLUX DISEASE
  7. REMICADE [Concomitant]
     Indication: PSORIATIC ARTHROPATHY

REACTIONS (3)
  - Hip surgery [Unknown]
  - Drug ineffective [Unknown]
  - Muscle spasms [Not Recovered/Not Resolved]
